FAERS Safety Report 8712692 (Version 3)
Quarter: 2012Q4

REPORT INFORMATION
  Report Type: 
  Country: US (occurrence: US)
  Receive Date: 20120808
  Receipt Date: 20120903
  Transmission Date: 20130627
  Serious: Yes (Hospitalization, Other)
  Sender: FDA-Public Use
  Company Number: US-BAYER-2012-077920

PATIENT
  Age: 35 Year
  Sex: Female
  Weight: 55.33 kg

DRUGS (21)
  1. YASMIN [Suspect]
     Indication: CONTRACEPTION
     Dosage: UNK
     Dates: start: 200706, end: 201002
  2. OCELLA [Suspect]
     Indication: CONTRACEPTION
     Dosage: UNK
     Dates: start: 200706, end: 201002
  3. ZOFRAN [Concomitant]
     Indication: PREMEDICATION
     Dosage: 4 mg, UNK
     Route: 042
     Dates: start: 20091222
  4. LORCET [Concomitant]
  5. MVI [Concomitant]
     Dosage: 1 daily
     Route: 048
  6. FISH OIL [Concomitant]
     Dosage: 300 mg, daily
     Route: 048
  7. DIETARY SUPPLEMENT [Concomitant]
     Dosage: 1 daily
     Route: 048
  8. ALEVE [Concomitant]
     Dosage: OTC PRN
     Route: 048
  9. NAPROXEN [Concomitant]
     Dosage: 500 mg, UNK
  10. XYLOCAINE [Concomitant]
     Dosage: 2 %, UNK
     Dates: start: 20091222
  11. CEFAZOLIN [Concomitant]
     Indication: INTRAOPERATIVE CARE
     Dosage: UNK
     Route: 042
     Dates: start: 20091222
  12. PROPOFOL [Concomitant]
     Dosage: UNK
     Dates: start: 20091222
  13. MIDAZOLAM [Concomitant]
     Dosage: UNK
     Dates: start: 20091222
  14. KETOROLAC [Concomitant]
     Dosage: UNK
     Dates: start: 20091222
  15. DEXAMETHASONE [Concomitant]
     Dosage: UNK
     Dates: start: 20091222
  16. FENTANYL [Concomitant]
     Dosage: UNK
     Dates: start: 20091222
  17. LACTATED RINGER^S [Concomitant]
     Dosage: UNK
     Route: 042
     Dates: start: 20091222
  18. SODIUM CHLORIDE [Concomitant]
     Dosage: 0.9 %, UNK
     Route: 042
     Dates: start: 20091222
  19. OXYCODONE/APAP [Concomitant]
     Dosage: 5/325
  20. LEVAQUIN [Concomitant]
     Dosage: 500 mg daily
     Route: 048
  21. HYDROCODONE W/IBUPROFEN [Concomitant]
     Dosage: 1 tablet, PRN
     Route: 048

REACTIONS (11)
  - Deep vein thrombosis [None]
  - Pulmonary embolism [None]
  - Myocardial infarction [None]
  - Cerebrovascular accident [None]
  - Gallbladder disorder [None]
  - Pain [None]
  - Injury [None]
  - Anxiety [None]
  - Anhedonia [None]
  - Fear [None]
  - Mental disorder [None]
